FAERS Safety Report 22236846 (Version 2)
Quarter: 2023Q2

REPORT INFORMATION
  Report Type: Spontaneous
  Country: US (occurrence: US)
  Receive Date: 20230420
  Receipt Date: 20230508
  Transmission Date: 20230721
  Serious: Yes (Other)
  Sender: FDA-Public Use
  Company Number: US-AMGEN-USASP2023066629

PATIENT
  Age: 62 Year
  Sex: Female

DRUGS (1)
  1. NEULASTA [Suspect]
     Active Substance: PEGFILGRASTIM
     Indication: Product used for unknown indication
     Dosage: UNK
     Route: 065
     Dates: start: 2016

REACTIONS (3)
  - Toxic shock syndrome [Not Recovered/Not Resolved]
  - Capillary leak syndrome [Not Recovered/Not Resolved]
  - Exposure to toxic agent [Not Recovered/Not Resolved]

NARRATIVE: CASE EVENT DATE: 20160101
